FAERS Safety Report 7315823-9 (Version None)
Quarter: 2011Q1

REPORT INFORMATION
  Report Type: 
  Country: None (occurrence: None)
  Receive Date: 20110225
  Receipt Date: 20110222
  Transmission Date: 20110831
  Serious: Yes (Other)
  Sender: FDA-Public Use
  Company Number: GB-ABBOTT-10P-167-0664708-00

PATIENT
  Age: 44 Year
  Sex: Male

DRUGS (7)
  1. SENNA [Concomitant]
     Indication: PRODUCT USED FOR UNKNOWN INDICATION
  2. AMISULPRIDE [Suspect]
     Indication: PRODUCT USED FOR UNKNOWN INDICATION
  3. VOLTAREN [Concomitant]
     Indication: PRODUCT USED FOR UNKNOWN INDICATION
  4. VALPROATE SODIUM [Suspect]
     Indication: PRODUCT USED FOR UNKNOWN INDICATION
     Route: 048
  5. CLOZARIL [Suspect]
     Indication: SCHIZOPHRENIA
     Route: 048
     Dates: start: 20060220
  6. HYOSCINE HBR HYT [Concomitant]
     Indication: PRODUCT USED FOR UNKNOWN INDICATION
  7. DIAZEPAM [Suspect]
     Indication: PRODUCT USED FOR UNKNOWN INDICATION
     Route: 048

REACTIONS (5)
  - NEUTROPENIA [None]
  - NEUTROPHIL COUNT DECREASED [None]
  - EOSINOPHILIA [None]
  - WHITE BLOOD CELL COUNT INCREASED [None]
  - SUBACUTE ENDOCARDITIS [None]
